FAERS Safety Report 13414507 (Version 2)
Quarter: 2017Q2

REPORT INFORMATION
  Report Type: Spontaneous
  Country: CN (occurrence: CN)
  Receive Date: 20170407
  Receipt Date: 20170411
  Transmission Date: 20170830
  Serious: Yes (Other)
  Sender: FDA-Public Use
  Company Number: PHHY2017CN048912

PATIENT
  Age: 41 Year
  Sex: Female
  Weight: 62 kg

DRUGS (3)
  1. ASPIRIN. [Concomitant]
     Active Substance: ASPIRIN
     Indication: PRODUCT USED FOR UNKNOWN INDICATION
     Dosage: 0.1 OT, QD
     Route: 065
  2. AMLODIPINE [Suspect]
     Active Substance: AMLODIPINE BESYLATE
     Indication: HYPERTENSION
     Dosage: 1 DF, QD
     Route: 065
  3. CLOPIDOGREL [Concomitant]
     Active Substance: CLOPIDOGREL BISULFATE
     Indication: PRODUCT USED FOR UNKNOWN INDICATION
     Dosage: 75 MG, QD
     Route: 065

REACTIONS (21)
  - Abdominal infection [Unknown]
  - Poor peripheral circulation [Unknown]
  - C-reactive protein increased [Unknown]
  - Alanine aminotransferase increased [Unknown]
  - Cardiac myxoma [Unknown]
  - Cerebral arteriosclerosis [Unknown]
  - Blood fibrinogen increased [Unknown]
  - Pulse abnormal [Unknown]
  - Dysphonia [Unknown]
  - Embolism arterial [Unknown]
  - Iliac artery occlusion [Unknown]
  - Peripheral coldness [Unknown]
  - Red blood cell sedimentation rate increased [Unknown]
  - Protein total abnormal [Unknown]
  - Speech disorder [Unknown]
  - Abdominal pain upper [Unknown]
  - Aortic arteriosclerosis [Unknown]
  - Peripheral artery thrombosis [Unknown]
  - Aspartate aminotransferase increased [Unknown]
  - Muscular weakness [Unknown]
  - Haemoglobin decreased [Unknown]

NARRATIVE: CASE EVENT DATE: 201308
